FAERS Safety Report 11148250 (Version 1)
Quarter: 2015Q2

REPORT INFORMATION
  Report Type: Report from Study
  Country: BR (occurrence: BR)
  Receive Date: 20150529
  Receipt Date: 20150529
  Transmission Date: 20150821
  Serious: Yes (Death, Other)
  Sender: FDA-Public Use
  Company Number: PHHY2015BR064535

PATIENT
  Age: 73 Year
  Sex: Female

DRUGS (1)
  1. EXJADE [Suspect]
     Active Substance: DEFERASIROX
     Indication: MYELODYSPLASTIC SYNDROME
     Dosage: 5 DF, UNK
     Route: 065

REACTIONS (4)
  - Death [Fatal]
  - Nosocomial infection [Unknown]
  - Pneumonia [Unknown]
  - Disease complication [Unknown]

NARRATIVE: CASE EVENT DATE: 201408
